FAERS Safety Report 23037215 (Version 1)
Quarter: 2023Q4

REPORT INFORMATION
  Report Type: Spontaneous
  Country: DE (occurrence: DE)
  Receive Date: 20231006
  Receipt Date: 20231006
  Transmission Date: 20240109
  Serious: No
  Sender: FDA-Public Use
  Company Number: DE-ALKEM LABORATORIES LIMITED-DE-ALKEM-2023-09254

PATIENT
  Age: 46 Year
  Sex: Male

DRUGS (6)
  1. IBUPROFEN [Suspect]
     Active Substance: IBUPROFEN
     Indication: Rib fracture
     Dosage: UNK
     Route: 065
  2. QUETIAPINE FUMARATE [Suspect]
     Active Substance: QUETIAPINE FUMARATE
     Indication: Psychotic disorder
     Dosage: UNK
     Route: 065
  3. KESIMPTA [Suspect]
     Active Substance: OFATUMUMAB
     Indication: Product used for unknown indication
     Dosage: UNK (SOLUTION FOR INJECTION IN PREFILLED PEN)
     Route: 065
  4. LORAZEPAM [Concomitant]
     Active Substance: LORAZEPAM
     Indication: Psychotic disorder
     Dosage: UNK
     Route: 065
  5. Novalgin [Concomitant]
     Indication: Rib fracture
     Dosage: UNK
     Route: 065
  6. TILIDINE [Concomitant]
     Active Substance: TILIDINE
     Indication: Rib fracture
     Dosage: UNK
     Route: 065

REACTIONS (3)
  - Diplopia [Unknown]
  - Feeling cold [Unknown]
  - Muscle spasms [Unknown]

NARRATIVE: CASE EVENT DATE: 20230101
